FAERS Safety Report 8029927-9 (Version None)
Quarter: 2012Q1

REPORT INFORMATION
  Report Type: 
  Country: None (occurrence: None)
  Receive Date: 20120109
  Receipt Date: 20120105
  Transmission Date: 20120608
  Serious: Yes (Other)
  Sender: FDA-Public Use
  Company Number: US-AMGEN-USASP2011026020

PATIENT
  Age: 12 Year
  Sex: Male
  Weight: 107 kg

DRUGS (23)
  1. BACTRIM [Concomitant]
  2. PENICILLIN [Concomitant]
  3. MYCOPHENOLATE MOFETIL [Concomitant]
  4. SODIUM CHLORIDE [Concomitant]
     Dosage: 500 ML, UNK
     Route: 042
  5. CELLCEPT [Concomitant]
  6. PAMIDRONATE DISODIUM [Concomitant]
     Dosage: UNK UNK, Q2MO
  7. GABAPENTIN [Concomitant]
  8. VIACTIV                            /00751501/ [Concomitant]
  9. NPLATE [Suspect]
     Indication: IDIOPATHIC THROMBOCYTOPENIC PURPURA
     Dosage: 485 MUG, QWK
     Dates: start: 20110110, end: 20111201
  10. OMEPRAZOLE [Concomitant]
  11. CALCIUM+VIT D                      /00944201/ [Concomitant]
  12. MAGNESIUM SULFATE [Concomitant]
     Dosage: 22 MEQ, UNK
     Route: 042
  13. MORPHINE [Concomitant]
  14. LOVAZA [Concomitant]
  15. POTASSIUM CHLORIDE [Concomitant]
     Dosage: 20 MEQ, UNK
     Route: 042
  16. PLATELETS [Concomitant]
     Dosage: UNK
     Dates: start: 20110120
  17. MICAFUNGIN [Concomitant]
  18. MAGNESIUM [Concomitant]
  19. PREDNISONE TAB [Concomitant]
  20. ACYCLOVIR [Concomitant]
  21. VITAMIN D [Concomitant]
  22. MULTIVITAMIN                       /00097801/ [Concomitant]
  23. PROTEIN [Concomitant]

REACTIONS (9)
  - EOSINOPHILIA [None]
  - ARTHRALGIA [None]
  - PALLOR [None]
  - ELECTROLYTE DEPLETION [None]
  - INTERTRIGO CANDIDA [None]
  - HYPOGAMMAGLOBULINAEMIA [None]
  - MALAISE [None]
  - DERMATITIS EXFOLIATIVE [None]
  - TRANSAMINASES INCREASED [None]
